FAERS Safety Report 11846257 (Version 2)
Quarter: 2016Q2

REPORT INFORMATION
  Report Type: Spontaneous
  Country: DE (occurrence: JP)
  Receive Date: 20151217
  Receipt Date: 20160414
  Transmission Date: 20160815
  Serious: Yes (Death)
  Sender: FDA-Public Use
  Company Number: JP-FRI-1000081480

PATIENT
  Age: 82 Year
  Sex: Male
  Weight: 65 kg

DRUGS (9)
  1. MEMANTINE. [Suspect]
     Active Substance: MEMANTINE
     Indication: DEMENTIA ALZHEIMER^S TYPE
     Dosage: 5 MG
     Route: 048
     Dates: start: 20151027, end: 20151102
  2. METOPROLOL. [Concomitant]
     Active Substance: METOPROLOL
     Dates: start: 20150713, end: 20151106
  3. HALCION [Concomitant]
     Active Substance: TRIAZOLAM
     Dates: start: 19960508, end: 20151105
  4. ARICEPT [Suspect]
     Active Substance: DONEPEZIL HYDROCHLORIDE
     Indication: DEMENTIA ALZHEIMER^S TYPE
     Dosage: 5 MG
     Route: 048
     Dates: start: 201107, end: 20120812
  5. ICOSAPENT ETHYL [Concomitant]
     Active Substance: ICOSAPENT ETHYL
     Dates: start: 20140911, end: 20151106
  6. ARICEPT [Suspect]
     Active Substance: DONEPEZIL HYDROCHLORIDE
     Dosage: 10 MG
     Route: 048
     Dates: start: 20120813, end: 20151106
  7. CILNIDIPINE [Concomitant]
     Active Substance: CILNIDIPINE
     Dates: start: 20100320, end: 20151106
  8. MEMANTINE. [Suspect]
     Active Substance: MEMANTINE
     Dosage: 10 MG
     Route: 048
     Dates: start: 20151103, end: 20151106
  9. AZILVA [Concomitant]
     Active Substance: AZILSARTAN KAMEDOXOMIL
     Dates: start: 20131017, end: 20151106

REACTIONS (1)
  - Myocardial infarction [Fatal]

NARRATIVE: CASE EVENT DATE: 20151106
